FAERS Safety Report 8985906 (Version 1)
Quarter: 2012Q4

REPORT INFORMATION
  Report Type: 
  Country: CN (occurrence: CN)
  Receive Date: 20121226
  Receipt Date: 20121226
  Transmission Date: 20130627
  Serious: Yes (Other)
  Sender: FDA-Public Use
  Company Number: CN-JNJFOC-20121208467

PATIENT
  Age: 25 Month
  Sex: Male
  Weight: 15 kg

DRUGS (2)
  1. CHILDREN^S MOTRIN [Suspect]
     Route: 048
  2. CHILDREN^S MOTRIN [Suspect]
     Indication: PYREXIA
     Route: 048
     Dates: start: 20121214, end: 20121214

REACTIONS (2)
  - Bronchitis [Recovered/Resolved]
  - Rash [Recovered/Resolved]
